FAERS Safety Report 17029199 (Version 1)
Quarter: 2019Q4

REPORT INFORMATION
  Report Type: Spontaneous
  Country: US (occurrence: US)
  Receive Date: 20191114
  Receipt Date: 20191114
  Transmission Date: 20200122
  Serious: No
  Sender: FDA-Public Use
  Company Number: US-TEVA-2019-US-1135407

PATIENT
  Sex: Male

DRUGS (5)
  1. CLOPIDOGREL [Suspect]
     Active Substance: CLOPIDOGREL BISULFATE
     Dosage: 75 MG
     Route: 065
  2. ALPRAZOLAM. [Concomitant]
     Active Substance: ALPRAZOLAM
  3. CLOPIDOGREL APOTEX [Concomitant]
     Active Substance: CLOPIDOGREL BISULFATE
  4. TEVA PRAVASTATIN [Concomitant]
     Dosage: DOSE DECREASED FROM 40 MG TO 30 MG
  5. BABY ASPIRIN [Concomitant]
     Active Substance: ASPIRIN

REACTIONS (3)
  - Headache [Unknown]
  - Ligament disorder [Unknown]
  - Skin discolouration [Unknown]
